FAERS Safety Report 11341576 (Version 1)
Quarter: 2015Q3

REPORT INFORMATION
  Report Type: Spontaneous
  Country: US (occurrence: None)
  Receive Date: 20150803
  Receipt Date: 20150803
  Transmission Date: 20151125
  Serious: Yes (Other)
  Sender: FDA-Public Use
  Company Number: None

PATIENT
  Age: 72 Year
  Sex: Male
  Weight: 64.41 kg

DRUGS (4)
  1. LISINOPRIL. [Suspect]
     Active Substance: LISINOPRIL
     Indication: BLOOD PRESSURE MEASUREMENT
     Dosage: TAKEN BY MOUTH
     Dates: start: 20150506, end: 20150705
  2. MKULTI-VIT/MINERALS [Concomitant]
  3. METROPROLOL [Concomitant]
     Active Substance: METOPROLOL
  4. PLAVIX [Suspect]
     Active Substance: CLOPIDOGREL BISULFATE

REACTIONS (2)
  - Cough [None]
  - Haemorrhage [None]

NARRATIVE: CASE EVENT DATE: 20150704
